FAERS Safety Report 8400302-8 (Version None)
Quarter: 2012Q2

REPORT INFORMATION
  Report Type: 
  Country: None (occurrence: None)
  Receive Date: 20120525
  Receipt Date: 20120512
  Transmission Date: 20120825
  Serious: Yes (Hospitalization)
  Sender: FDA-Public Use
  Company Number: 2012AP001505

PATIENT
  Age: 79 Year
  Sex: Female

DRUGS (6)
  1. MIRTAZAPINE [Suspect]
     Indication: DEPRESSION
  2. LORAZEPAM [Suspect]
     Indication: INSOMNIA
     Dosage: 0.5 MG;HS
  3. ALCOHOL [Suspect]
  4. METOPROLOL TARTRATE [Suspect]
     Indication: HYPERTENSION
  5. SERTRALINE HYDROCHLORIDE [Suspect]
     Indication: DEPRESSION
     Dosage: 150 MG;AM
  6. GLYBURIDE [Suspect]
     Indication: TYPE 2 DIABETES MELLITUS

REACTIONS (11)
  - DECREASED APPETITE [None]
  - LOSS OF CONSCIOUSNESS [None]
  - ALCOHOL INTERACTION [None]
  - ALCOHOLISM [None]
  - LETHARGY [None]
  - DRUG EFFECT DECREASED [None]
  - INSOMNIA [None]
  - TREATMENT NONCOMPLIANCE [None]
  - ANXIETY [None]
  - COGNITIVE DISORDER [None]
  - BLOOD GLUCOSE INCREASED [None]
